FAERS Safety Report 5582676-9 (Version None)
Quarter: 2008Q1

REPORT INFORMATION
  Report Type: 
  Country: None (occurrence: None)
  Receive Date: 20080107
  Receipt Date: 20080103
  Transmission Date: 20080703
  Serious: Yes (Other)
  Sender: FDA-Public Use
  Company Number: US-ELI_LILLY_AND_COMPANY-US200801000380

PATIENT
  Age: 58 Year
  Sex: Female

DRUGS (3)
  1. EVISTA [Suspect]
     Indication: PROPHYLAXIS
     Dosage: 60 MG, UNK
     Dates: start: 20080101
  2. LIPITOR [Concomitant]
  3. SYNTHROID [Concomitant]

REACTIONS (2)
  - EYE HAEMORRHAGE [None]
  - PAIN [None]
